FAERS Safety Report 5481042-4 (Version None)
Quarter: 2007Q4

REPORT INFORMATION
  Report Type: 
  Country: None (occurrence: None)
  Receive Date: 20071009
  Receipt Date: 20070927
  Transmission Date: 20080405
  Serious: Yes (Other)
  Sender: FDA-Public Use
  Company Number: US-PFIZER INC-2007078867

PATIENT
  Sex: Male
  Weight: 88 kg

DRUGS (7)
  1. CHANTIX [Suspect]
     Indication: EX-SMOKER
     Route: 048
     Dates: start: 20070802, end: 20070919
  2. LIPITOR [Concomitant]
  3. OXYCODONE HCL [Concomitant]
  4. ALTACE [Concomitant]
  5. NOVOLOG [Concomitant]
  6. EFFEXOR [Concomitant]
  7. INSULIN [Concomitant]

REACTIONS (12)
  - ABNORMAL DREAMS [None]
  - AGGRESSION [None]
  - AGITATION [None]
  - ANGER [None]
  - CONSTIPATION [None]
  - DEPRESSION [None]
  - EMOTIONAL DISORDER [None]
  - ENURESIS [None]
  - IRRITABILITY [None]
  - NAUSEA [None]
  - SMOKER [None]
  - STOMACH DISCOMFORT [None]
